FAERS Safety Report 19079329 (Version 1)
Quarter: 2021Q1

REPORT INFORMATION
  Report Type: Other
  Country: FR (occurrence: FR)
  Receive Date: 20210331
  Receipt Date: 20210331
  Transmission Date: 20210420
  Serious: Yes (Hospitalization)
  Sender: FDA-Public Use
  Company Number: FR-VALIDUS PHARMACEUTICALS LLC-FR-2021VAL000308

PATIENT
  Age: 81 Year
  Sex: Female
  Weight: 94 kg

DRUGS (15)
  1. COLCHICINE. [Suspect]
     Active Substance: COLCHICINE
     Indication: CHONDROCALCINOSIS
     Dosage: UNK
     Route: 048
     Dates: start: 20171012, end: 20171016
  2. COUMADINE [Suspect]
     Active Substance: WARFARIN SODIUM
     Indication: DEEP VEIN THROMBOSIS
     Dosage: UNK
     Route: 049
     Dates: start: 20171014, end: 20171016
  3. ECONAZOLE. [Suspect]
     Active Substance: ECONAZOLE NITRATE
     Indication: FUNGAL INFECTION
     Dosage: UNK
     Route: 061
     Dates: start: 20170926, end: 20171018
  4. NEFOPAM HYDROCHLORIDE [Suspect]
     Active Substance: NEFOPAM HYDROCHLORIDE
     Indication: PROCEDURAL PAIN
     Dosage: UNK
     Route: 065
     Dates: start: 20170923, end: 20171017
  5. LASIX [Suspect]
     Active Substance: FUROSEMIDE
     Indication: CARDIAC FAILURE
     Dosage: 1/2 CP PER DAY THEN 1 PER DAYN, ORAL
     Dates: start: 20170926, end: 20171020
  6. ZOPICLONE AVENTIS [Suspect]
     Active Substance: ZOPICLONE
     Indication: INSOMNIA
     Dosage: 7.5 UG; ORAL
     Dates: start: 20171016
  7. MEROPENEM. [Suspect]
     Active Substance: MEROPENEM
     Dosage: 3 G,UNK; IV NOS
  8. FLAMMAZINE [Suspect]
     Active Substance: SILVER SULFADIAZINE
     Indication: WOUND INFECTION FUNGAL
     Dosage: UNK
     Route: 061
     Dates: start: 20171004, end: 20171016
  9. FLAMMAZINE [Suspect]
     Active Substance: SILVER SULFADIAZINE
     Dosage: UNK
     Route: 065
  10. TARGOCID [Suspect]
     Active Substance: TEICOPLANIN
     Indication: INFECTION
     Dosage: 800 MG,BID
     Route: 040
     Dates: start: 20171009, end: 20171018
  11. PANTOPRAZOLE [Suspect]
     Active Substance: PANTOPRAZOLE
     Indication: PRODUCT USED FOR UNKNOWN INDICATION
     Dosage: 40 MG,UNK; ORAL
     Dates: start: 20171002, end: 20171018
  12. NEFOPAM HYDROCHLORIDE [Suspect]
     Active Substance: NEFOPAM HYDROCHLORIDE
     Dosage: UNK
     Route: 065
  13. ZOPICLONE AVENTIS [Suspect]
     Active Substance: ZOPICLONE
     Dosage: 7.5 UG; ORAL
  14. METOCLOPRAMIDE HYDROCHLORIDE. [Suspect]
     Active Substance: METOCLOPRAMIDE HYDROCHLORIDE
     Indication: PROPHYLAXIS OF NAUSEA AND VOMITING
     Dosage: UNK
     Dates: start: 20171002, end: 20171017
  15. MEROPENEM. [Suspect]
     Active Substance: MEROPENEM
     Indication: BACTERIAL INFECTION
     Dosage: 1 G,UNK; IV NOS
     Dates: start: 20170925, end: 20171018

REACTIONS (1)
  - Rash maculo-papular [Recovered/Resolved]

NARRATIVE: CASE EVENT DATE: 20171016
